FAERS Safety Report 6234655-6 (Version None)
Quarter: 2009Q2

REPORT INFORMATION
  Report Type: 
  Country: None (occurrence: None)
  Receive Date: 20090618
  Receipt Date: 20090604
  Transmission Date: 20091009
  Serious: Yes (Other)
  Sender: FDA-Public Use
  Company Number: B0575170A

PATIENT
  Sex: Female
  Weight: 80 kg

DRUGS (3)
  1. ALLI [Suspect]
     Dosage: 1CAP SINGLE DOSE
     Route: 065
     Dates: start: 20090504, end: 20090504
  2. PROZAC [Concomitant]
     Indication: DEPRESSION
     Route: 065
     Dates: start: 19990101
  3. SERESTA [Concomitant]
     Indication: DEPRESSION
     Route: 065
     Dates: start: 19990101

REACTIONS (6)
  - ANAPHYLACTIC SHOCK [None]
  - DYSPNOEA [None]
  - GENERALISED OEDEMA [None]
  - INTENTIONAL DRUG MISUSE [None]
  - PRURITUS [None]
  - TACHYCARDIA [None]
